FAERS Safety Report 20258668 (Version 8)
Quarter: 2025Q2

REPORT INFORMATION
  Report Type: Report from Study
  Country: CA (occurrence: CA)
  Receive Date: 20211230
  Receipt Date: 20250415
  Transmission Date: 20250717
  Serious: Yes (Other)
  Sender: TAKEDA
  Company Number: CA-TAKEDA-2021TUS083041

PATIENT
  Age: 63 Year
  Sex: Male

DRUGS (10)
  1. VEDOLIZUMAB [Suspect]
     Active Substance: VEDOLIZUMAB
     Indication: Colitis ulcerative
  2. VEDOLIZUMAB [Suspect]
     Active Substance: VEDOLIZUMAB
  3. VEDOLIZUMAB [Suspect]
     Active Substance: VEDOLIZUMAB
  4. VEDOLIZUMAB [Suspect]
     Active Substance: VEDOLIZUMAB
  5. VEDOLIZUMAB [Suspect]
     Active Substance: VEDOLIZUMAB
     Dosage: 300 MILLIGRAM, Q4WEEKS
     Dates: start: 20230130
  6. VEDOLIZUMAB [Suspect]
     Active Substance: VEDOLIZUMAB
     Dosage: 300 MILLIGRAM, Q4WEEKS
  7. VEDOLIZUMAB [Suspect]
     Active Substance: VEDOLIZUMAB
     Dosage: 300 MILLIGRAM, Q4WEEKS
  8. VEDOLIZUMAB [Suspect]
     Active Substance: VEDOLIZUMAB
     Dosage: 300 MILLIGRAM, Q4WEEKS
  9. Salofalk [Concomitant]
  10. MESALAMINE [Concomitant]
     Active Substance: MESALAMINE

REACTIONS (14)
  - Colitis ulcerative [Unknown]
  - Haematochezia [Unknown]
  - Type 2 diabetes mellitus [Recovering/Resolving]
  - Asthenia [Unknown]
  - Feeling cold [Unknown]
  - Off label use [Unknown]
  - Anorectal disorder [Unknown]
  - Abdominal pain [Unknown]
  - Anal fissure [Recovering/Resolving]
  - Arthralgia [Unknown]
  - Abnormal faeces [Unknown]
  - Weight increased [Recovering/Resolving]
  - Dyschezia [Recovering/Resolving]
  - Haemorrhoids [Recovering/Resolving]

NARRATIVE: CASE EVENT DATE: 20230130
